FAERS Safety Report 7225792-8 (Version None)
Quarter: 2011Q1

REPORT INFORMATION
  Report Type: 
  Country: None (occurrence: None)
  Receive Date: 20110110
  Receipt Date: 20110110
  Transmission Date: 20110831
  Serious: Yes (Hospitalization, Other)
  Sender: FDA-Public Use
  Company Number: None

PATIENT
  Age: 81 Year
  Sex: Female
  Weight: 51.2565 kg

DRUGS (1)
  1. GABAPENTIN [Suspect]
     Indication: NERVE COMPRESSION
     Dosage: 300 MG 1 CAPSULE BEDTIME AS NEEDED BUCCAL
     Route: 002
     Dates: start: 20101227, end: 20101228

REACTIONS (7)
  - TREMOR [None]
  - DYSARTHRIA [None]
  - LETHARGY [None]
  - DYSKINESIA [None]
  - DIZZINESS [None]
  - ASTHENIA [None]
  - EYE MOVEMENT DISORDER [None]
